FAERS Safety Report 15289235 (Version 1)
Quarter: 2018Q3

REPORT INFORMATION
  Report Type: Spontaneous
  Country: US (occurrence: US)
  Receive Date: 20180817
  Receipt Date: 20180817
  Transmission Date: 20181010
  Serious: No
  Sender: FDA-Public Use
  Company Number: US-ELI_LILLY_AND_COMPANY-US201808007291

PATIENT
  Sex: Male

DRUGS (3)
  1. LEVEMIR [Concomitant]
     Active Substance: INSULIN DETEMIR
     Indication: PRODUCT USED FOR UNKNOWN INDICATION
  2. HUMALOG [Suspect]
     Active Substance: INSULIN LISPRO
     Indication: PRODUCT USED FOR UNKNOWN INDICATION
     Dosage: 16 U, TID
     Route: 058
     Dates: start: 20180803
  3. HUMALOG [Suspect]
     Active Substance: INSULIN LISPRO
     Dosage: 18 U, TID
     Route: 058

REACTIONS (1)
  - Blood glucose increased [Recovered/Resolved]
